FAERS Safety Report 9159862 (Version 1)
Quarter: 2013Q1

REPORT INFORMATION
  Report Type: Spontaneous
  Country: US (occurrence: US)
  Receive Date: 20130313
  Receipt Date: 20130313
  Transmission Date: 20140127
  Serious: Yes (Other)
  Sender: FDA-Public Use
  Company Number: US-PFIZER INC-2013081885

PATIENT
  Age: 66 Year
  Sex: Male
  Weight: 87.98 kg

DRUGS (3)
  1. SOLU-MEDROL [Suspect]
     Indication: DYSPNOEA
     Dosage: UNK, ONCE
     Route: 042
     Dates: start: 20130304, end: 20130304
  2. SODIUM METABISULFITE [Suspect]
     Dosage: UNK
  3. CRESTOR [Concomitant]
     Indication: BLOOD CHOLESTEROL INCREASED
     Dosage: 20 MG, 1X/DAY

REACTIONS (3)
  - Blood pressure decreased [Unknown]
  - Heart rate abnormal [Unknown]
  - Hypersensitivity [Unknown]
